FAERS Safety Report 6315325-2 (Version None)
Quarter: 2009Q3

REPORT INFORMATION
  Report Type: 
  Country: None (occurrence: None)
  Receive Date: 20090819
  Receipt Date: 20090812
  Transmission Date: 20100115
  Serious: Yes (Congenital Anomaly)
  Sender: FDA-Public Use
  Company Number: US-GILEAD-2009-0023276

PATIENT
  Sex: Male

DRUGS (4)
  1. TRUVADA [Suspect]
     Indication: HIV INFECTION
     Route: 048
     Dates: start: 20080826
  2. FOLATE [Concomitant]
     Indication: SUPPLEMENTATION THERAPY
  3. KALETRA [Concomitant]
     Indication: HIV INFECTION
     Route: 048
  4. METRONIDAZOLE [Concomitant]

REACTIONS (2)
  - CONGENITAL NAEVUS [None]
  - PILONIDAL CYST CONGENITAL [None]
